FAERS Safety Report 8544641-9 (Version None)
Quarter: 2012Q3

REPORT INFORMATION
  Report Type: 
  Country: None (occurrence: None)
  Receive Date: 20120727
  Receipt Date: 20120725
  Transmission Date: 20120928
  Serious: Yes (Hospitalization)
  Sender: FDA-Public Use
  Company Number: DE-ROCHE-1066354

PATIENT
  Sex: Female
  Weight: 66 kg

DRUGS (5)
  1. PEGASYS [Suspect]
     Indication: HEPATITIS C
     Route: 058
     Dates: start: 20110705, end: 20111122
  2. MICTONORM [Concomitant]
     Dates: start: 20111102, end: 20111117
  3. COPEGUS [Suspect]
     Indication: HEPATITIS C
     Route: 048
     Dates: start: 20110705, end: 20111122
  4. ZOLPIDEM [Concomitant]
     Dates: start: 20110817, end: 20110930
  5. BLINDED ALISPORIVIR [Suspect]
     Indication: HEPATITIS C
     Route: 048
     Dates: start: 20110705, end: 20111122

REACTIONS (1)
  - DISORIENTATION [None]
